FAERS Safety Report 24265180 (Version 1)
Quarter: 2024Q3

REPORT INFORMATION
  Report Type: Spontaneous
  Country: US (occurrence: US)
  Receive Date: 20240829
  Receipt Date: 20240829
  Transmission Date: 20241017
  Serious: No
  Sender: INCYTE
  Company Number: US-INCYTE CORPORATION-2024IN008717

PATIENT

DRUGS (1)
  1. JAKAFI [Suspect]
     Active Substance: RUXOLITINIB
     Indication: Essential thrombocythaemia
     Dosage: 10 MILLIGRAM, BID
     Route: 048
     Dates: start: 20240813

REACTIONS (7)
  - Abdominal discomfort [Unknown]
  - Gastrointestinal disorder [Unknown]
  - Hypophagia [Unknown]
  - Feeling hot [Unknown]
  - Diarrhoea [Unknown]
  - Headache [Unknown]
  - Off label use [Unknown]

NARRATIVE: CASE EVENT DATE: 20240801
